FAERS Safety Report 7151651-5 (Version None)
Quarter: 2010Q4

REPORT INFORMATION
  Report Type: 
  Country: None (occurrence: None)
  Receive Date: 20101124
  Receipt Date: 20101108
  Transmission Date: 20110411
  Serious: Yes (Death)
  Sender: FDA-Public Use
  Company Number: UTC-002206

PATIENT
  Age: 33 Year
  Sex: Female

DRUGS (3)
  1. REMODULIN [Suspect]
     Indication: PULMONARY ARTERIAL HYPERTENSION
     Dosage: 26.352 UG/KG (0.0183 UG/KG, 1 IN 1 MIN), INTRAVENOUS
     Route: 042
     Dates: start: 20071228
  2. ADCIRCA [Concomitant]
  3. LETAIRIS (AMBRISENTAN) [Concomitant]

REACTIONS (1)
  - DEATH [None]
